FAERS Safety Report 6221994-8 (Version None)
Quarter: 2009Q2

REPORT INFORMATION
  Report Type: 
  Country: None (occurrence: None)
  Receive Date: 20090608
  Receipt Date: 20090608
  Transmission Date: 20091009
  Serious: Yes (Other)
  Sender: FDA-Public Use
  Company Number: None

PATIENT
  Age: 74 Year
  Sex: Male
  Weight: 81.6475 kg

DRUGS (2)
  1. CISPLATIN [Suspect]
     Dosage: 140MG EVERY 3 WEEKS IV DRIP
     Route: 041
     Dates: start: 20090225, end: 20090604
  2. VP-16 40 MG SICOR [Suspect]
     Dosage: 40MG EVERY 3 WEEKS IV DRIP
     Route: 041

REACTIONS (2)
  - NAUSEA [None]
  - VOMITING [None]
